FAERS Safety Report 4928808-4 (Version None)
Quarter: 2006Q1

REPORT INFORMATION
  Report Type: 
  Country: None (occurrence: None)
  Receive Date: 20060227
  Receipt Date: 20060227
  Transmission Date: 20060701
  Serious: Yes (Life-Threatening, Hospitalization, Other)
  Sender: FDA-Public Use
  Company Number: None

PATIENT
  Age: 55 Year
  Sex: Female
  Weight: 79.5 kg

DRUGS (2)
  1. LYRICA [Suspect]
     Indication: NEURALGIA
     Dates: start: 20060212, end: 20060219
  2. CYMBALTA [Suspect]
     Indication: NEURALGIA
     Dates: start: 20060212, end: 20060219

REACTIONS (11)
  - ANIMAL SCRATCH [None]
  - ERYTHEMA MULTIFORME [None]
  - HERPES ZOSTER [None]
  - HYPOTENSION [None]
  - INJURY [None]
  - PHOTOSENSITIVITY REACTION [None]
  - SEPSIS [None]
  - SKIN ULCER [None]
  - STEVENS-JOHNSON SYNDROME [None]
  - TOXIC EPIDERMAL NECROLYSIS [None]
  - VASCULITIS [None]
